FAERS Safety Report 11061418 (Version 2)
Quarter: 2015Q2

REPORT INFORMATION
  Report Type: Spontaneous
  Country: US (occurrence: US)
  Receive Date: 20150424
  Receipt Date: 20150507
  Transmission Date: 20150821
  Serious: No
  Sender: FDA-Public Use
  Company Number: US-PFIZER INC-2015136396

PATIENT
  Age: 58 Year
  Sex: Male
  Weight: 77 kg

DRUGS (3)
  1. VIAGRA [Suspect]
     Active Substance: SILDENAFIL CITRATE
     Indication: ERECTILE DYSFUNCTION
     Dosage: 1 TABLET OF 50 MG, AS NEEDED
     Route: 048
     Dates: start: 2015
  2. VITAMIN C [Concomitant]
     Active Substance: ASCORBIC ACID
     Indication: BLADDER DISORDER
     Dosage: 500 MG, DAILY
  3. VIAGRA [Suspect]
     Active Substance: SILDENAFIL CITRATE
     Dosage: 2 TABLETS OF 50 MG, UNK
     Route: 048

REACTIONS (2)
  - Drug ineffective [Unknown]
  - Heart rate increased [Unknown]
